FAERS Safety Report 7239113-8 (Version None)
Quarter: 2011Q1

REPORT INFORMATION
  Report Type: 
  Country: None (occurrence: None)
  Receive Date: 20110121
  Receipt Date: 20110114
  Transmission Date: 20110831
  Serious: Yes (Hospitalization)
  Sender: FDA-Public Use
  Company Number: US-US-EMD SERONO, INC.-7036362

PATIENT
  Sex: Female
  Weight: 69 kg

DRUGS (4)
  1. NEURONTIN [Concomitant]
  2. REBIF [Suspect]
     Indication: MULTIPLE SCLEROSIS
     Route: 058
     Dates: start: 20030714
  3. BACLOFEN [Concomitant]
     Indication: MUSCLE SPASMS
  4. AMITRIPTYLINE [Concomitant]
     Indication: BURNING SENSATION

REACTIONS (4)
  - CONVULSION [None]
  - BLOOD POTASSIUM DECREASED [None]
  - MULTIPLE SCLEROSIS [None]
  - INJECTION SITE REACTION [None]
